FAERS Safety Report 5740494-2 (Version None)
Quarter: 2008Q2

REPORT INFORMATION
  Report Type: 
  Country: None (occurrence: None)
  Receive Date: 20080516
  Receipt Date: 20080509
  Transmission Date: 20081010
  Serious: Yes (Other)
  Sender: FDA-Public Use
  Company Number: US-TYCO HEALTHCARE/MALLINCKRODT-T200800808

PATIENT

DRUGS (6)
  1. OPTIMARK [Suspect]
     Indication: HEADACHE
     Dosage: 15 ML, SINGLE
     Route: 042
     Dates: start: 20080507, end: 20080507
  2. OPTIMARK [Suspect]
     Indication: DIZZINESS
  3. ZOCOR [Concomitant]
  4. REMERON [Concomitant]
  5. NAPROSYN [Concomitant]
  6. DIABETEX [Concomitant]

REACTIONS (1)
  - THROAT TIGHTNESS [None]
